FAERS Safety Report 6653928-6 (Version None)
Quarter: 2010Q1

REPORT INFORMATION
  Report Type: 
  Country: None (occurrence: None)
  Receive Date: 20100326
  Receipt Date: 20100316
  Transmission Date: 20100710
  Serious: Yes (Hospitalization)
  Sender: FDA-Public Use
  Company Number: IT-ELI_LILLY_AND_COMPANY-IT201003004383

PATIENT
  Sex: Male
  Weight: 64 kg

DRUGS (3)
  1. GEMCITABINE HCL [Suspect]
     Indication: NON-SMALL CELL LUNG CANCER
     Dosage: 1250 MG/M2, D1+8 EVERY 3 WEEKS
     Route: 042
     Dates: start: 20091223, end: 20100311
  2. CISPLATIN [Suspect]
     Indication: NON-SMALL CELL LUNG CANCER
     Dosage: 75 MG/M2, D1 EVERY 3 WEEKS
     Route: 042
     Dates: start: 20091223, end: 20100311
  3. CETUXIMAB [Suspect]
     Indication: NON-SMALL CELL LUNG CANCER
     Dosage: 250 MG/M2, WEEKLY (1/W)
     Route: 042
     Dates: start: 20091223, end: 20100311

REACTIONS (1)
  - PLEURAL EFFUSION [None]
